FAERS Safety Report 8125593-2 (Version None)
Quarter: 2012Q1

REPORT INFORMATION
  Report Type: 
  Country: None (occurrence: None)
  Receive Date: 20120209
  Receipt Date: 20120206
  Transmission Date: 20120608
  Serious: Yes (Other)
  Sender: FDA-Public Use
  Company Number: US-PFIZER INC-2012032355

PATIENT
  Sex: Female
  Weight: 61.224 kg

DRUGS (4)
  1. VITAMIN TAB [Concomitant]
     Dosage: UNK
  2. GEODON [Suspect]
     Indication: SUICIDAL IDEATION
     Dosage: 160 MG, DAILY
  3. EFFEXOR XR [Suspect]
     Indication: DEPRESSION
     Dosage: UNK
  4. POLYSACCHARIDE-IRON COMPLEX [Concomitant]
     Indication: BLOOD IRON ABNORMAL
     Dosage: UNK

REACTIONS (2)
  - WITHDRAWAL SYNDROME [None]
  - SUICIDAL IDEATION [None]
